FAERS Safety Report 4396756-7 (Version None)
Quarter: 2004Q3

REPORT INFORMATION
  Report Type: 
  Country: None (occurrence: None)
  Receive Date: 20040714
  Receipt Date: 20040702
  Transmission Date: 20050211
  Serious: Yes (Hospitalization, Disabling)
  Sender: FDA-Public Use
  Company Number: FR-AMGEN-US082694

PATIENT
  Age: 64 Year
  Sex: Male

DRUGS (7)
  1. ENBREL [Suspect]
     Indication: RHEUMATOID ARTHRITIS
     Route: 058
     Dates: start: 20021230
  2. CORTANCYL [Concomitant]
  3. FLUDROCORTISONE ACETATE [Concomitant]
  4. METHOTREXATE [Concomitant]
  5. BISOPROLOL FUMARATE [Concomitant]
  6. PREVISCAN [Concomitant]
  7. FOLIC ACID [Concomitant]

REACTIONS (1)
  - CORONARY ARTERY STENOSIS [None]
